FAERS Safety Report 21392664 (Version 1)
Quarter: 2022Q3

REPORT INFORMATION
  Report Type: Report from Study
  Country: US (occurrence: US)
  Receive Date: 20220929
  Receipt Date: 20220929
  Transmission Date: 20221027
  Serious: Yes (Hospitalization)
  Sender: FDA-Public Use
  Company Number: US-ABBVIE-4131132

PATIENT
  Sex: Male

DRUGS (1)
  1. IMBRUVICA [Suspect]
     Active Substance: IBRUTINIB
     Indication: Chronic lymphocytic leukaemia
     Route: 048
     Dates: end: 20220923

REACTIONS (6)
  - Constipation [Unknown]
  - Dry mouth [Unknown]
  - Eye pruritus [Unknown]
  - Arthralgia [Unknown]
  - Myalgia [Unknown]
  - Back pain [Unknown]
